FAERS Safety Report 4654814-3 (Version None)
Quarter: 2005Q2

REPORT INFORMATION
  Report Type: 
  Country: None (occurrence: None)
  Receive Date: 20050505
  Receipt Date: 20050505
  Transmission Date: 20051028
  Serious: Yes (Hospitalization, Disabling)
  Sender: FDA-Public Use
  Company Number: None

PATIENT
  Age: 85 Year
  Sex: Male
  Weight: 60.95 kg

DRUGS (1)
  1. HALOPERIDOL [Suspect]
     Indication: AGITATION
     Dosage: HALOPERIDOL    2MG    INTRAMUSCU
     Route: 030
     Dates: start: 20050430, end: 20050430

REACTIONS (3)
  - ACTIVITIES OF DAILY LIVING IMPAIRED [None]
  - SOCIAL AVOIDANT BEHAVIOUR [None]
  - TREMOR [None]
